FAERS Safety Report 14255290 (Version 2)
Quarter: 2018Q3

REPORT INFORMATION
  Report Type: Report from Study
  Country: GB (occurrence: GB)
  Receive Date: 20171206
  Receipt Date: 20180807
  Transmission Date: 20181010
  Serious: No
  Sender: FDA-Public Use
  Company Number: PHHY2017GB177679

PATIENT
  Age: 84 Year
  Sex: Female

DRUGS (2)
  1. ERELZI [Suspect]
     Active Substance: ETANERCEPT-SZZS
     Dosage: 50 MG, UNK
     Route: 058
     Dates: start: 20171115
  2. ERELZI [Suspect]
     Active Substance: ETANERCEPT-SZZS
     Indication: PRODUCT USED FOR UNKNOWN INDICATION
     Dosage: 50 MG, UNK
     Route: 058
     Dates: start: 201710

REACTIONS (3)
  - Injection site pain [Unknown]
  - Visual impairment [Unknown]
  - Product use complaint [Unknown]

NARRATIVE: CASE EVENT DATE: 20171122
